FAERS Safety Report 11538841 (Version 2)
Quarter: 2015Q4

REPORT INFORMATION
  Report Type: Spontaneous
  Country: JP (occurrence: JP)
  Receive Date: 20150923
  Receipt Date: 20151007
  Transmission Date: 20160304
  Serious: Yes (Hospitalization, Other)
  Sender: FDA-Public Use
  Company Number: JP-ROCHE-1601039

PATIENT
  Age: 73 Year
  Sex: Female
  Weight: 47 kg

DRUGS (15)
  1. KYTRIL [Concomitant]
     Active Substance: GRANISETRON HYDROCHLORIDE
     Route: 042
     Dates: start: 20140808
  2. EMEND [Concomitant]
     Active Substance: APREPITANT
     Route: 048
     Dates: start: 20140808, end: 20140808
  3. BENIDIPINE HYDROCHLORIDE [Concomitant]
     Active Substance: BENIDIPINE HYDROCHLORIDE
     Route: 048
  4. PACLITAXEL. [Suspect]
     Active Substance: PACLITAXEL
     Indication: OVARIAN CANCER
     Route: 041
     Dates: start: 20140808, end: 20140808
  5. PACLITAXEL. [Suspect]
     Active Substance: PACLITAXEL
     Indication: OVARIAN CANCER
     Dosage: DOSAGE IS UNCERTAIN.
     Route: 041
     Dates: start: 20140919
  6. CARBOPLATIN. [Suspect]
     Active Substance: CARBOPLATIN
     Indication: OVARIAN CANCER
     Route: 041
     Dates: start: 20140808, end: 20140808
  7. CARBOPLATIN. [Suspect]
     Active Substance: CARBOPLATIN
     Indication: OVARIAN CANCER
     Dosage: DOSAGE IS UNCERTAIN.
     Route: 041
     Dates: start: 20140919
  8. EMEND [Concomitant]
     Active Substance: APREPITANT
     Route: 048
     Dates: start: 20140809, end: 20140810
  9. MICARDIS [Concomitant]
     Active Substance: TELMISARTAN
     Route: 048
  10. PACLITAXEL. [Suspect]
     Active Substance: PACLITAXEL
     Indication: OVARIAN CANCER
     Dosage: DOSAGE IS UNCERTAIN.
     Route: 041
     Dates: start: 20140718, end: 20140718
  11. XARELTO [Suspect]
     Active Substance: RIVAROXABAN
     Indication: PRODUCT USED FOR UNKNOWN INDICATION
     Route: 048
  12. ORGADRONE [Concomitant]
     Active Substance: DEXAMETHASONE SODIUM PHOSPHATE
     Route: 042
     Dates: start: 20140808
  13. AVASTIN [Suspect]
     Active Substance: BEVACIZUMAB
     Indication: OVARIAN CANCER
     Dosage: COMPLETED TREATMENT CYCLE NUMBER: 1
     Route: 041
     Dates: start: 20140808, end: 20140808
  14. CARBOPLATIN. [Suspect]
     Active Substance: CARBOPLATIN
     Indication: OVARIAN CANCER
     Dosage: DOSAGE IS UNCERTAIN.
     Route: 041
     Dates: start: 20140718, end: 20140718
  15. GASTER [Concomitant]
     Active Substance: FAMOTIDINE
     Route: 042
     Dates: start: 20140808

REACTIONS (5)
  - Impaired healing [Unknown]
  - Bone marrow failure [Unknown]
  - Lower gastrointestinal haemorrhage [Recovering/Resolving]
  - Haematotoxicity [Unknown]
  - Gastrointestinal stenosis [Recovering/Resolving]

NARRATIVE: CASE EVENT DATE: 20140825
